FAERS Safety Report 9144006 (Version 1)
Quarter: 2013Q1

REPORT INFORMATION
  Report Type: Spontaneous
  Country: US (occurrence: US)
  Receive Date: 20130306
  Receipt Date: 20130306
  Transmission Date: 20140127
  Serious: No
  Sender: FDA-Public Use
  Company Number: US-009507513-1210USA007808

PATIENT
  Sex: Female

DRUGS (1)
  1. CHLOR-TRIMETON [Suspect]
     Indication: PRODUCT USED FOR UNKNOWN INDICATION
     Dosage: 4 MG, BID
     Dates: start: 20121009

REACTIONS (1)
  - Drug ineffective [Unknown]
